FAERS Safety Report 5822786-1 (Version None)
Quarter: 2008Q3

REPORT INFORMATION
  Report Type: 
  Country: None (occurrence: None)
  Receive Date: 20080725
  Receipt Date: 20071003
  Transmission Date: 20090109
  Serious: No
  Sender: FDA-Public Use
  Company Number: US-AMGEN-KDL239443

PATIENT
  Sex: Female
  Weight: 65.8 kg

DRUGS (11)
  1. PROCRIT [Suspect]
     Indication: MYELODYSPLASTIC SYNDROME
     Dates: start: 20070102
  2. LOVASTATIN [Concomitant]
  3. AMILORIDE HYDROCHLORIDE [Concomitant]
  4. CENTRUM SILVER [Concomitant]
  5. STRESSTABS [Concomitant]
  6. GLUCOSAMINE W/CHONDROITIN SULFATES [Concomitant]
  7. CALCIUM CITRATE [Concomitant]
  8. ZINC [Concomitant]
  9. ASPIRIN [Concomitant]
  10. BLOOD CELLS, PACKED HUMAN [Concomitant]
     Dates: start: 20050420
  11. VITAMIN D [Concomitant]

REACTIONS (2)
  - HYPOAESTHESIA [None]
  - PARAESTHESIA [None]
